FAERS Safety Report 10216768 (Version 2)
Quarter: 2014Q2

REPORT INFORMATION
  Report Type: Spontaneous
  Country: US (occurrence: US)
  Receive Date: 20140604
  Receipt Date: 20140625
  Transmission Date: 20141212
  Serious: Yes (Other)
  Sender: FDA-Public Use
  Company Number: US-PFIZER INC-2014153421

PATIENT
  Age: 57 Year
  Sex: Female
  Weight: 126.53 kg

DRUGS (5)
  1. CELEBREX [Suspect]
     Indication: OSTEOARTHRITIS
     Dosage: 200 MG, 1X/DAY
     Route: 048
  2. MELOXICAM [Concomitant]
     Dosage: UNK
  3. METHADONE [Concomitant]
     Dosage: 10 MG, 2X/DAY
  4. HYDROCODONE W/ACETAMINOPHEN [Concomitant]
     Dosage: 325 MG, UNK
  5. SYNTHROID [Concomitant]
     Indication: HYPOTHYROIDISM
     Dosage: UNK

REACTIONS (4)
  - Arthropathy [Unknown]
  - Intentional product misuse [Unknown]
  - Fibromyalgia [Unknown]
  - Arthritis [Unknown]
